FAERS Safety Report 6522756-4 (Version None)
Quarter: 2009Q4

REPORT INFORMATION
  Report Type: 
  Country: None (occurrence: None)
  Receive Date: 20091230
  Receipt Date: 20091217
  Transmission Date: 20100525
  Serious: Yes (Death)
  Sender: FDA-Public Use
  Company Number: GB-GENENTECH-296180

PATIENT
  Sex: Male
  Weight: 69.8 kg

DRUGS (4)
  1. RITUXIMAB [Suspect]
     Indication: MANTLE CELL LYMPHOMA
     Dosage: 700 MG, UNK
     Route: 042
     Dates: start: 20090402, end: 20090806
  2. FLUDARABINE [Suspect]
     Indication: MANTLE CELL LYMPHOMA
     Dosage: 70 MG, UNK
     Route: 048
     Dates: start: 20090402, end: 20090808
  3. CYCLOPHOSPHAMIDE [Suspect]
     Indication: MANTLE CELL LYMPHOMA
     Dosage: 450 MG, UNK
     Route: 048
     Dates: start: 20090402, end: 20090808
  4. PENTAMIDINE ISETHIONATE [Concomitant]
     Indication: PROPHYLAXIS
     Dosage: UNK
     Route: 055

REACTIONS (2)
  - BRONCHOPNEUMONIA [None]
  - RESPIRATORY FAILURE [None]
